FAERS Safety Report 19318926 (Version 1)
Quarter: 2021Q2

REPORT INFORMATION
  Report Type: Spontaneous
  Country: US (occurrence: US)
  Receive Date: 20210527
  Receipt Date: 20210527
  Transmission Date: 20210717
  Serious: Yes (Disabling)
  Sender: FDA-Public Use
  Company Number: None

PATIENT
  Age: 17 Year
  Sex: Female
  Weight: 55.8 kg

DRUGS (1)
  1. CIPROFLOXACIN. [Suspect]
     Active Substance: CIPROFLOXACIN
     Indication: URINARY TRACT INFECTION
     Dosage: ?          QUANTITY:24 TABLET(S);?
     Route: 030
     Dates: start: 20170901, end: 20170907

REACTIONS (6)
  - Hypoaesthesia [None]
  - Tendon pain [None]
  - Swelling of eyelid [None]
  - Lip swelling [None]
  - Nasal congestion [None]
  - Arthralgia [None]

NARRATIVE: CASE EVENT DATE: 20170901
